FAERS Safety Report 7911635-3 (Version None)
Quarter: 2011Q4

REPORT INFORMATION
  Report Type: 
  Country: None (occurrence: None)
  Receive Date: 20111114
  Receipt Date: 20111114
  Transmission Date: 20120403
  Serious: Yes (Hospitalization)
  Sender: FDA-Public Use
  Company Number: None

PATIENT
  Age: 40 Year
  Sex: Female
  Weight: 85.2 kg

DRUGS (7)
  1. SORAFENIB [Concomitant]
     Indication: BREAST CANCER
     Dosage: 200 MG
     Route: 048
     Dates: start: 20110705, end: 20111109
  2. FLUCONAZOLE [Concomitant]
  3. MORPHINE SULFATE [Concomitant]
  4. CETIRIZINE HCL [Concomitant]
  5. AMLODIPINE/VALSARTAN [Concomitant]
  6. CITALOPRAM HYDROBROMIDE [Concomitant]
  7. CISPLATIN [Suspect]
     Indication: BREAST CANCER
     Dosage: 75 MG/M2
     Route: 041
     Dates: start: 20110802, end: 20111020

REACTIONS (6)
  - RENAL FAILURE ACUTE [None]
  - DERMATITIS [None]
  - TRANSAMINASES INCREASED [None]
  - BLOOD BILIRUBIN INCREASED [None]
  - JAUNDICE [None]
  - LETHARGY [None]
